FAERS Safety Report 21930741 (Version 1)
Quarter: 2023Q1

REPORT INFORMATION
  Report Type: Spontaneous
  Country: US (occurrence: US)
  Receive Date: 20230131
  Receipt Date: 20230131
  Transmission Date: 20230417
  Serious: Yes (Hospitalization, Other)
  Sender: FDA-Public Use
  Company Number: US-MYLANLABS-2023M1008882

PATIENT
  Age: 50 Year
  Sex: Male

DRUGS (4)
  1. IMATINIB [Suspect]
     Active Substance: IMATINIB
     Indication: Chronic myeloid leukaemia
     Dosage: 400 MILLIGRAM, QD
     Route: 065
  2. DASATINIB [Suspect]
     Active Substance: DASATINIB
     Indication: Chronic myeloid leukaemia
     Dosage: UNK
     Route: 065
  3. NILOTINIB [Suspect]
     Active Substance: NILOTINIB
     Indication: Chronic myeloid leukaemia
     Dosage: 400 MILLIGRAM, QD
     Route: 065
  4. NILOTINIB [Suspect]
     Active Substance: NILOTINIB
     Dosage: 200 MILLIGRAM
     Route: 065

REACTIONS (7)
  - Cytopenia [Recovering/Resolving]
  - Condition aggravated [Recovering/Resolving]
  - Rectal haemorrhage [Recovering/Resolving]
  - Pancytopenia [Recovering/Resolving]
  - Aplastic anaemia [Recovering/Resolving]
  - Gastrointestinal toxicity [Unknown]
  - Therapeutic response decreased [Unknown]
